FAERS Safety Report 23780813 (Version 1)
Quarter: 2024Q2

REPORT INFORMATION
  Report Type: Spontaneous
  Country: US (occurrence: US)
  Receive Date: 20240425
  Receipt Date: 20240425
  Transmission Date: 20240716
  Serious: No
  Sender: FDA-Public Use
  Company Number: US-SUN PHARMACEUTICAL INDUSTRIES LTD-2023R1-424201

PATIENT
  Sex: Male
  Weight: 58.957 kg

DRUGS (1)
  1. ILUMYA [Suspect]
     Active Substance: TILDRAKIZUMAB-ASMN
     Indication: Psoriasis
     Dosage: 100 MILLIGRAM AT WEEK 4, THEN EVERY 12 WEEKS THEREAFTER
     Route: 051
     Dates: start: 20230617

REACTIONS (1)
  - Psoriasis [Unknown]
